FAERS Safety Report 6338026-3 (Version None)
Quarter: 2009Q3

REPORT INFORMATION
  Report Type: 
  Country: None (occurrence: None)
  Receive Date: 20090902
  Receipt Date: 20090820
  Transmission Date: 20100115
  Serious: Yes (Hospitalization)
  Sender: FDA-Public Use
  Company Number: AU-MYLANLABS-2009S1014800

PATIENT
  Age: 41 Year
  Sex: Female

DRUGS (3)
  1. DOXYLIN [Suspect]
     Indication: HELICOBACTER INFECTION
     Route: 048
     Dates: start: 20090701, end: 20090815
  2. MYCOBUTIN [Suspect]
     Indication: HELICOBACTER INFECTION
     Route: 048
     Dates: start: 20090701, end: 20090815
  3. PARIET [Concomitant]

REACTIONS (4)
  - CHILLS [None]
  - NEUTROPENIA [None]
  - PAIN [None]
  - VOMITING [None]
